FAERS Safety Report 6535519-0 (Version None)
Quarter: 2010Q1

REPORT INFORMATION
  Report Type: 
  Country: None (occurrence: None)
  Receive Date: 20100113
  Receipt Date: 20100111
  Transmission Date: 20100710
  Serious: Yes (Hospitalization, Other)
  Sender: FDA-Public Use
  Company Number: US-BRISTOL-MYERS SQUIBB COMPANY-14907521

PATIENT
  Age: 18 Year
  Sex: Male

DRUGS (6)
  1. ORENCIA [Suspect]
     Indication: MIXED CONNECTIVE TISSUE DISEASE
     Route: 042
     Dates: start: 20090701
  2. ORENCIA [Suspect]
     Indication: ARTHRITIS
     Route: 042
     Dates: start: 20090701
  3. METHOTREXATE [Suspect]
     Route: 058
  4. PREDNISONE [Suspect]
  5. FOLIC ACID [Suspect]
  6. PLAQUENIL [Suspect]
     Dates: start: 20090501, end: 20091101

REACTIONS (1)
  - MIXED CONNECTIVE TISSUE DISEASE [None]
